FAERS Safety Report 4538640-1 (Version None)
Quarter: 2004Q4

REPORT INFORMATION
  Report Type: 
  Country: None (occurrence: None)
  Receive Date: 20041227
  Receipt Date: 20041217
  Transmission Date: 20050328
  Serious: Yes (Death)
  Sender: FDA-Public Use
  Company Number: US-JNJFOC-20041205536

PATIENT
  Age: 90 Year
  Sex: Female

DRUGS (6)
  1. LEVAQUIN [Suspect]
     Indication: DRUG USE FOR UNKNOWN INDICATION
     Route: 042
  2. SULFA [Concomitant]
  3. SULFA [Concomitant]
  4. SULFA [Concomitant]
  5. SULFA [Concomitant]
  6. AMINOGLYCOSIDE [Concomitant]

REACTIONS (1)
  - HYPOGLYCAEMIA [None]
